FAERS Safety Report 24765378 (Version 2)
Quarter: 2025Q3

REPORT INFORMATION
  Report Type: Spontaneous
  Country: CN (occurrence: None)
  Receive Date: 20241223
  Receipt Date: 20250803
  Transmission Date: 20251021
  Serious: Yes (Life-Threatening, Hospitalization, Other)
  Sender: ALEXION PHARMACEUTICALS
  Company Number: CN-ASTRAZENECA-202412CHN018172CN

PATIENT
  Age: 76 Year
  Sex: Female
  Weight: 57.5 kg

DRUGS (4)
  1. DAPAGLIFLOZIN [Suspect]
     Active Substance: DAPAGLIFLOZIN
     Indication: Type 2 diabetes mellitus
     Dosage: 10 MILLIGRAM, QD
     Dates: start: 20241116, end: 20241205
  2. INSULIN ASPART\INSULIN DEGLUDEC [Suspect]
     Active Substance: INSULIN ASPART\INSULIN DEGLUDEC
     Indication: Type 2 diabetes mellitus
     Dosage: 20 UNK, BID
     Dates: start: 20241106, end: 20241205
  3. REPAGLINIDE [Suspect]
     Active Substance: REPAGLINIDE
     Indication: Type 2 diabetes mellitus
     Dosage: 1 MILLIGRAM, Q3W
     Dates: start: 20241106, end: 20241205
  4. PIOGLITAZONE HYDROCHLORIDE [Suspect]
     Active Substance: PIOGLITAZONE HYDROCHLORIDE
     Indication: Type 2 diabetes mellitus
     Dosage: 30 MILLIGRAM, QD

REACTIONS (1)
  - Hypoglycaemic coma [Recovering/Resolving]
